FAERS Safety Report 6046926-7 (Version None)
Quarter: 2009Q1

REPORT INFORMATION
  Report Type: 
  Country: None (occurrence: None)
  Receive Date: 20090122
  Receipt Date: 20090116
  Transmission Date: 20090719
  Serious: Yes (Other)
  Sender: FDA-Public Use
  Company Number: RS-WYE-H07524609

PATIENT
  Sex: Female
  Weight: 50 kg

DRUGS (3)
  1. TEMSIROLIMUS [Suspect]
     Indication: RENAL CELL CARCINOMA
     Route: 042
     Dates: start: 20081229, end: 20081229
  2. BROMAZEPAM [Concomitant]
     Indication: ANXIETY
     Dosage: UNKNOWN
     Route: 065
  3. BEVACIZUMAB [Suspect]
     Indication: RENAL CELL CARCINOMA
     Route: 042
     Dates: start: 20081229

REACTIONS (1)
  - BRONCHOSPASM [None]
